FAERS Safety Report 7421234-8 (Version None)
Quarter: 2011Q2

REPORT INFORMATION
  Report Type: 
  Country: None (occurrence: None)
  Receive Date: 20110418
  Receipt Date: 20110412
  Transmission Date: 20111010
  Serious: Yes (Death, Other)
  Sender: FDA-Public Use
  Company Number: GB-NOVOPROD-323595

PATIENT
  Sex: Male
  Weight: 125 kg

DRUGS (8)
  1. VICTOZA [Suspect]
     Indication: TYPE 2 DIABETES MELLITUS
     Dosage: 1.2 MG, QD
     Dates: start: 20090901
  2. RAMIPRIL [Concomitant]
     Dosage: 10 MG, UNK
  3. DIAMICRON [Concomitant]
     Dosage: REDUCED TO HALF DOSE
  4. ATENOLOL [Concomitant]
     Dosage: 50 MG, UNK
  5. DIAMICRON [Concomitant]
     Indication: DIABETES MELLITUS
     Dosage: UNKNOWN
  6. VICTOZA [Suspect]
     Dosage: 1.8 MG, QD
     Dates: start: 20091101
  7. METFORMIN [Concomitant]
     Dosage: 1000 MG, BID
  8. ADIPINE [Concomitant]
     Dosage: 20 MG, BID

REACTIONS (5)
  - VIRAL INFECTION [None]
  - UPPER RESPIRATORY TRACT INFECTION [None]
  - CARDIAC FAILURE ACUTE [None]
  - LYMPHOMA [None]
  - MALAISE [None]
